FAERS Safety Report 24415954 (Version 1)
Quarter: 2024Q4

REPORT INFORMATION
  Report Type: Report from Study
  Country: US (occurrence: US)
  Receive Date: 20241009
  Receipt Date: 20241009
  Transmission Date: 20250115
  Serious: Yes (Hospitalization, Other)
  Sender: GILEAD
  Company Number: US-GILEAD-2024-0690217

PATIENT
  Age: 39 Year
  Sex: Female

DRUGS (1)
  1. AZTREONAM LYSINE [Suspect]
     Active Substance: AZTREONAM LYSINE
     Indication: Cystic fibrosis lung
     Dosage: 1 DOSAGE FORM, TID (28 DAYS ON FOLLOWED BY 28 DAYS OFF  )
     Route: 055
     Dates: start: 20220403

REACTIONS (8)
  - Cystic fibrosis [Unknown]
  - Exercise tolerance decreased [Unknown]
  - Respiratory rate increased [Unknown]
  - Poor quality sleep [Unknown]
  - Nasal congestion [Unknown]
  - Wheezing [Unknown]
  - Cough [Unknown]
  - Dyspnoea [Unknown]
